FAERS Safety Report 7898291-8 (Version None)
Quarter: 2011Q4

REPORT INFORMATION
  Report Type: 
  Country: None (occurrence: None)
  Receive Date: 20111107
  Receipt Date: 20111019
  Transmission Date: 20120403
  Serious: Yes (Other)
  Sender: FDA-Public Use
  Company Number: CHPA2011US14492

PATIENT

DRUGS (1)
  1. TRANSDERM SCOP [Suspect]
     Dosage: 1 DF, Q48H
     Route: 062
     Dates: end: 20111001

REACTIONS (8)
  - MYDRIASIS [None]
  - VISION BLURRED [None]
  - SUICIDAL IDEATION [None]
  - DRY MOUTH [None]
  - ANXIETY [None]
  - NAUSEA [None]
  - PANIC ATTACK [None]
  - DIZZINESS [None]
